FAERS Safety Report 8883244 (Version 1)
Quarter: 2012Q4

REPORT INFORMATION
  Report Type: 
  Country: US (occurrence: US)
  Receive Date: 20121102
  Receipt Date: 20121102
  Transmission Date: 20130627
  Serious: No
  Sender: FDA-Public Use
  Company Number: US-ASTRAZENECA-2012SE61218

PATIENT
  Age: 74 Year
  Sex: Female
  Weight: 83.9 kg

DRUGS (9)
  1. NEXIUM [Suspect]
     Indication: GASTROOESOPHAGEAL REFLUX DISEASE
     Route: 048
  2. NEXIUM [Suspect]
     Indication: COUGH
     Route: 048
  3. NEXIUM [Suspect]
     Indication: GASTROOESOPHAGEAL REFLUX DISEASE
     Route: 048
     Dates: start: 20120819
  4. NEXIUM [Suspect]
     Indication: COUGH
     Route: 048
     Dates: start: 20120819
  5. PRILOSEC [Suspect]
     Indication: GASTROOESOPHAGEAL REFLUX DISEASE
     Route: 048
  6. PRILOSEC [Suspect]
     Indication: COUGH
     Route: 048
  7. JANUVIA [Concomitant]
     Indication: DIABETES MELLITUS
  8. DIOVAN [Concomitant]
     Indication: HYPERTENSION
  9. CELEBREX [Concomitant]
     Indication: ARTHRITIS

REACTIONS (9)
  - Gastrooesophageal reflux disease [Unknown]
  - Hiatus hernia [Unknown]
  - Hypertension [Unknown]
  - Cough [Unknown]
  - Sneezing [Unknown]
  - Pharyngitis [Unknown]
  - Irritability [Unknown]
  - Diabetes mellitus [Unknown]
  - Intentional drug misuse [Unknown]
